FAERS Safety Report 7755074-7 (Version None)
Quarter: 2011Q3

REPORT INFORMATION
  Report Type: 
  Country: None (occurrence: None)
  Receive Date: 20110916
  Receipt Date: 20110906
  Transmission Date: 20111222
  Serious: Yes (Hospitalization)
  Sender: FDA-Public Use
  Company Number: US-ELI_LILLY_AND_COMPANY-US201108000670

PATIENT
  Sex: Female
  Weight: 75.737 kg

DRUGS (1)
  1. FORTEO [Suspect]
     Indication: OSTEOPOROSIS
     Dosage: 20 UG, QD
     Dates: start: 20110222

REACTIONS (3)
  - CHEST PAIN [None]
  - CARDIAC DISORDER [None]
  - DRUG DOSE OMISSION [None]
